FAERS Safety Report 4533658-7 (Version None)
Quarter: 2004Q4

REPORT INFORMATION
  Report Type: 
  Country: None (occurrence: None)
  Receive Date: 20041221
  Receipt Date: 20041116
  Transmission Date: 20050328
  Serious: Yes (Other)
  Sender: FDA-Public Use
  Company Number: FR-BRISTOL-MYERS SQUIBB COMPANY-12766812

PATIENT
  Age: 58 Year
  Sex: Female
  Weight: 90 kg

DRUGS (4)
  1. PARAPLATIN [Suspect]
     Route: 042
     Dates: start: 20041112, end: 20041112
  2. TAXOL [Concomitant]
     Dates: start: 20041112, end: 20041121
  3. HERCEPTIN [Concomitant]
     Dates: start: 20041112, end: 20041112
  4. ARANESP [Concomitant]
     Dates: start: 20041112, end: 20041112

REACTIONS (3)
  - ANAPHYLACTIC SHOCK [None]
  - HYPERSENSITIVITY [None]
  - SHOCK [None]
